FAERS Safety Report 12994620 (Version 1)
Quarter: 2016Q4

REPORT INFORMATION
  Report Type: Report from Study
  Country: US (occurrence: US)
  Receive Date: 20161202
  Receipt Date: 20161202
  Transmission Date: 20170207
  Serious: Yes (Other)
  Sender: FDA-Public Use
  Company Number: PHEH2016US031090

PATIENT
  Sex: Female

DRUGS (1)
  1. ENTRESTO [Suspect]
     Active Substance: SACUBITRIL\VALSARTAN
     Indication: PRODUCT USED FOR UNKNOWN INDICATION
     Route: 065

REACTIONS (7)
  - Dysstasia [Unknown]
  - Peripheral swelling [Unknown]
  - Renal disorder [Unknown]
  - Cough [Unknown]
  - Dyspnoea [Unknown]
  - Cardiac valve disease [Unknown]
  - Abasia [Unknown]
